FAERS Safety Report 11709700 (Version 2)
Quarter: 2015Q4

REPORT INFORMATION
  Report Type: Spontaneous
  Country: US (occurrence: US)
  Receive Date: 20151104
  Receipt Date: 20151110
  Transmission Date: 20160304
  Serious: No
  Sender: FDA-Public Use
  Company Number: US-ELI_LILLY_AND_COMPANY-US201107006578

PATIENT
  Sex: Female

DRUGS (1)
  1. FORTEO [Suspect]
     Active Substance: TERIPARATIDE
     Indication: OSTEOPOROSIS
     Dosage: 20 UG, QD
     Route: 065
     Dates: start: 2010

REACTIONS (6)
  - Weight decreased [Unknown]
  - Muscle atrophy [Unknown]
  - Hypotonia [Unknown]
  - Skin wrinkling [Unknown]
  - Muscular weakness [Unknown]
  - Bone disorder [Unknown]

NARRATIVE: CASE EVENT DATE: 2010
